FAERS Safety Report 12216948 (Version 1)
Quarter: 2016Q1

REPORT INFORMATION
  Report Type: Spontaneous
  Country: CO (occurrence: None)
  Receive Date: 20160328
  Receipt Date: 20160328
  Transmission Date: 20160526
  Serious: Yes (Disabling, Other)
  Sender: FDA-Public Use
  Company Number: None

PATIENT
  Age: 18 Year
  Sex: Female
  Weight: 76 kg

DRUGS (5)
  1. INMUNOLOGIC TERAPIES TREATMENT [Concomitant]
  2. MIDODRINE [Concomitant]
     Active Substance: MIDODRINE
  3. DAOSIN [Concomitant]
  4. TRAMADOL. [Concomitant]
     Active Substance: TRAMADOL
  5. IVERMECTIN. [Suspect]
     Active Substance: IVERMECTIN
     Indication: LICE INFESTATION

REACTIONS (12)
  - Dyspnoea [None]
  - Fall [None]
  - Mental disorder [None]
  - Syncope [None]
  - Pallor [None]
  - Headache [None]
  - Drug hypersensitivity [None]
  - Chest pain [None]
  - Cardiac disorder [None]
  - Feeling cold [None]
  - Gastric disorder [None]
  - Blood disorder [None]

NARRATIVE: CASE EVENT DATE: 20090226
